FAERS Safety Report 9029474 (Version 1)
Quarter: 2013Q1

REPORT INFORMATION
  Report Type: Spontaneous
  Country: BE (occurrence: BE)
  Receive Date: 20130125
  Receipt Date: 20130125
  Transmission Date: 20140127
  Serious: Yes (Death)
  Sender: FDA-Public Use
  Company Number: BE-COVIDIEN/TYCO HEALTHCARE/MALLINCKRODT-T201300166

PATIENT
  Age: 32 Year
  Sex: Male

DRUGS (1)
  1. METHADOSE ORAL UNFLAVORED [Suspect]
     Indication: PRODUCT USED FOR UNKNOWN INDICATION
     Dosage: UNK

REACTIONS (4)
  - Completed suicide [Fatal]
  - Poisoning [Fatal]
  - Respiratory depression [Fatal]
  - Cardiopulmonary failure [Fatal]
